FAERS Safety Report 14779841 (Version 1)
Quarter: 2018Q2

REPORT INFORMATION
  Report Type: Spontaneous
  Country: FR (occurrence: FR)
  Receive Date: 20180419
  Receipt Date: 20180419
  Transmission Date: 20180711
  Serious: Yes (Life-Threatening)
  Sender: FDA-Public Use
  Company Number: FR-EISAI MEDICAL RESEARCH-EC-2018-038164

PATIENT
  Age: 28 Year
  Sex: Male

DRUGS (4)
  1. FYCOMPA [Suspect]
     Active Substance: PERAMPANEL
     Indication: LENNOX-GASTAUT SYNDROME
     Route: 048
  2. URBANYL [Concomitant]
     Active Substance: CLOBAZAM
     Indication: LENNOX-GASTAUT SYNDROME
     Dosage: UNKNOWN
  3. LAMICTAL [Concomitant]
     Active Substance: LAMOTRIGINE
     Indication: LENNOX-GASTAUT SYNDROME
     Dosage: UNKNOWN
  4. DEPAKINE [Concomitant]
     Active Substance: VALPROATE SODIUM
     Indication: LENNOX-GASTAUT SYNDROME
     Dosage: UNKNOWN

REACTIONS (3)
  - Product use in unapproved indication [Unknown]
  - Respiratory distress [Unknown]
  - Product use issue [Unknown]

NARRATIVE: CASE EVENT DATE: 201804
